FAERS Safety Report 20921260 (Version 1)
Quarter: 2022Q2

REPORT INFORMATION
  Report Type: Spontaneous
  Country: US (occurrence: None)
  Receive Date: 20220606
  Receipt Date: 20220606
  Transmission Date: 20220721
  Serious: Yes (unspecified)
  Sender: FDA-Public Use
  Company Number: None

PATIENT
  Age: 47 Year
  Sex: Male
  Weight: 180.9 kg

DRUGS (10)
  1. PAXLOVID [Suspect]
     Active Substance: NIRMATRELVIR\RITONAVIR
     Indication: COVID-19
     Dosage: FREQUENCY : TWICE A DAY;?
     Route: 048
     Dates: start: 20220527, end: 20220601
  2. BIKTARVY [Concomitant]
     Active Substance: BICTEGRAVIR SODIUM\EMTRICITABINE\TENOFOVIR ALAFENAMIDE FUMARATE
  3. ALLOPURINOL [Concomitant]
     Active Substance: ALLOPURINOL
  4. METOPROLOL [Concomitant]
     Active Substance: METOPROLOL
  5. LISINOPRIL [Concomitant]
     Active Substance: LISINOPRIL
  6. BUMETANIDE [Concomitant]
     Active Substance: BUMETANIDE
  7. GABAPENTIN [Concomitant]
     Active Substance: GABAPENTIN
  8. METFORMIN [Concomitant]
     Active Substance: METFORMIN HYDROCHLORIDE
  9. ATORVASTATIN [Concomitant]
     Active Substance: ATORVASTATIN
  10. SPIRONOLACTONE [Concomitant]
     Active Substance: SPIRONOLACTONE

REACTIONS (2)
  - Nausea [None]
  - Dehydration [None]

NARRATIVE: CASE EVENT DATE: 20220531
